FAERS Safety Report 6550904-9 (Version None)
Quarter: 2010Q1

REPORT INFORMATION
  Report Type: 
  Country: None (occurrence: None)
  Receive Date: 20100125
  Receipt Date: 20091228
  Transmission Date: 20100710
  Serious: Yes (Hospitalization)
  Sender: FDA-Public Use
  Company Number: PHHY2009FR59310

PATIENT
  Sex: Female

DRUGS (8)
  1. EXFORGE [Suspect]
     Dosage: 1 DF, QD
     Route: 048
     Dates: end: 20091105
  2. ZOMETA [Suspect]
     Indication: METASTASES TO BONE
     Dosage: 4 MG, BIW
     Route: 042
     Dates: start: 20091023, end: 20091105
  3. LASILIX [Suspect]
     Dosage: 1 DF, QD
     Route: 048
     Dates: end: 20091105
  4. GADOLINIUM [Suspect]
     Dosage: 0.071 DF, UNK
     Route: 042
     Dates: start: 20091022
  5. IODINE [Suspect]
     Dosage: UNK
     Route: 042
     Dates: start: 20091023
  6. IBUPROFEN [Concomitant]
     Dosage: UNK
     Route: 048
     Dates: start: 20091016, end: 20091020
  7. PRAVASTATIN [Concomitant]
     Dosage: UNK
  8. RANELATE DE STRONTIUM [Concomitant]
     Dosage: UNK

REACTIONS (2)
  - RENAL FAILURE [None]
  - RENAL FAILURE ACUTE [None]
